FAERS Safety Report 4742575-9 (Version None)
Quarter: 2005Q3

REPORT INFORMATION
  Report Type: 
  Country: None (occurrence: None)
  Receive Date: 20050808
  Receipt Date: 20050722
  Transmission Date: 20060218
  Serious: Yes (Death, Other)
  Sender: FDA-Public Use
  Company Number: USA0507103554

PATIENT
  Age: 76 Year
  Sex: Female

DRUGS (1)
  1. HUMULIN 70/30 [Suspect]
     Dosage: 125 U DAY
     Dates: start: 19950101, end: 20050716

REACTIONS (1)
  - MYOCARDIAL INFARCTION [None]
